FAERS Safety Report 6816878-8 (Version None)
Quarter: 2010Q2

REPORT INFORMATION
  Report Type: 
  Country: None (occurrence: None)
  Receive Date: 20100630
  Receipt Date: 20100623
  Transmission Date: 20101027
  Serious: Yes (Death)
  Sender: FDA-Public Use
  Company Number: 2010JP003621

PATIENT
  Age: 33 Year
  Sex: Male

DRUGS (4)
  1. PROGRAF [Suspect]
     Indication: UNRELATED DONOR BONE MARROW TRANSPLANTATION THERAPY
  2. MYCOPHENOLATE MOFETIL [Concomitant]
  3. METHYLPREDNISOLONE [Concomitant]
  4. METHOTREXATE [Concomitant]

REACTIONS (2)
  - CYTOMEGALOVIRUS INFECTION [None]
  - ENDOTOXIC SHOCK [None]
